FAERS Safety Report 14775138 (Version 1)
Quarter: 2018Q2

REPORT INFORMATION
  Report Type: Other
  Country: GB (occurrence: GB)
  Receive Date: 20180418
  Receipt Date: 20180418
  Transmission Date: 20180711
  Serious: Yes (Disabling)
  Sender: FDA-Public Use
  Company Number: GB-GLENMARK PHARMACEUTICALS-2018GMK034347

PATIENT

DRUGS (3)
  1. VENTOLIN [Concomitant]
     Active Substance: ALBUTEROL SULFATE
     Indication: PRODUCT USED FOR UNKNOWN INDICATION
     Dosage: UNK
     Route: 065
  2. CITALOPRAM HYDROBROMIDE. [Suspect]
     Active Substance: CITALOPRAM HYDROBROMIDE
     Indication: PRODUCT USED FOR UNKNOWN INDICATION
     Dosage: 10MG/ 20MG
     Route: 048
     Dates: start: 201802
  3. PROGESTERONE. [Concomitant]
     Active Substance: PROGESTERONE
     Indication: ORAL CONTRACEPTION
     Dosage: UNK
     Route: 048

REACTIONS (9)
  - Panic attack [Unknown]
  - Diarrhoea [Not Recovered/Not Resolved]
  - Social avoidant behaviour [Unknown]
  - Restlessness [Not Recovered/Not Resolved]
  - Depression suicidal [Not Recovered/Not Resolved]
  - Mania [Not Recovered/Not Resolved]
  - Anxiety [Not Recovered/Not Resolved]
  - Fatigue [Not Recovered/Not Resolved]
  - Headache [Not Recovered/Not Resolved]
